FAERS Safety Report 6488679-4 (Version None)
Quarter: 2009Q4

REPORT INFORMATION
  Report Type: 
  Country: None (occurrence: None)
  Receive Date: 20091210
  Receipt Date: 20091201
  Transmission Date: 20100525
  Serious: Yes (Hospitalization, Other)
  Sender: FDA-Public Use
  Company Number: US-CELGENEUS-163-21880-09102280

PATIENT
  Sex: Male

DRUGS (5)
  1. REVLIMID [Suspect]
     Indication: MULTIPLE MYELOMA
     Route: 048
     Dates: start: 20090201
  2. REVLIMID [Suspect]
     Route: 048
     Dates: start: 20081001
  3. REVLIMID [Suspect]
     Route: 048
     Dates: start: 20091001
  4. MELPHALAN [Concomitant]
     Indication: DRUG USE FOR UNKNOWN INDICATION
     Route: 065
  5. AREDIA [Concomitant]
     Indication: DRUG USE FOR UNKNOWN INDICATION
     Route: 051

REACTIONS (6)
  - ASTHENIA [None]
  - BLOOD COUNT ABNORMAL [None]
  - FATIGUE [None]
  - FLUID RETENTION [None]
  - MULTIPLE MYELOMA [None]
  - NO THERAPEUTIC RESPONSE [None]
